FAERS Safety Report 9542510 (Version 1)
Quarter: 2013Q3

REPORT INFORMATION
  Report Type: Spontaneous
  Country: US (occurrence: US)
  Receive Date: 20130923
  Receipt Date: 20130923
  Transmission Date: 20140515
  Serious: Yes (Other)
  Sender: FDA-Public Use
  Company Number: US-TAKEDA-2013TUS000633

PATIENT
  Sex: 0

DRUGS (2)
  1. ULORIC [Suspect]
     Indication: GOUT
     Dosage: UNK
  2. COLCRYS [Suspect]
     Indication: GOUT
     Dosage: UNK

REACTIONS (2)
  - Pancreatitis [Not Recovered/Not Resolved]
  - Hepatic enzyme increased [Not Recovered/Not Resolved]
